FAERS Safety Report 8321936-5 (Version None)
Quarter: 2012Q2

REPORT INFORMATION
  Report Type: 
  Country: None (occurrence: None)
  Receive Date: 20120430
  Receipt Date: 20120426
  Transmission Date: 20120825
  Serious: Yes (Death, Hospitalization)
  Sender: FDA-Public Use
  Company Number: US-ROCHE-772815

PATIENT
  Sex: Male
  Weight: 127.3 kg

DRUGS (13)
  1. SIMVASTATIN [Concomitant]
  2. NORCO [Concomitant]
  3. PRILOSEC [Concomitant]
  4. FOLIC ACID [Concomitant]
  5. METOPROLOL TARTRATE [Concomitant]
  6. LISINOPRIL [Concomitant]
  7. MULTI-VITAMIN [Concomitant]
  8. METHOTREXATE [Suspect]
     Indication: RHEUMATOID ARTHRITIS
     Route: 048
     Dates: start: 20100514, end: 20120227
  9. METOPROLOL TARTRATE [Concomitant]
  10. CALCIUM [Concomitant]
  11. FUROSEMIDE [Concomitant]
  12. ASPIRIN [Concomitant]
  13. ACTEMRA [Suspect]
     Indication: RHEUMATOID ARTHRITIS
     Dosage: LAST DOSE PRIOR TO SAE: 16 FEB 2011
     Route: 042

REACTIONS (2)
  - ATRIAL FIBRILLATION [None]
  - PULMONARY FIBROSIS [None]
